FAERS Safety Report 6532783-9 (Version None)
Quarter: 2010Q1

REPORT INFORMATION
  Report Type: 
  Country: None (occurrence: None)
  Receive Date: 20100111
  Receipt Date: 20100105
  Transmission Date: 20100710
  Serious: Yes (Hospitalization)
  Sender: FDA-Public Use
  Company Number: PHEH2009US13282

PATIENT
  Sex: Male
  Weight: 63.492 kg

DRUGS (2)
  1. EXJADE [Suspect]
     Indication: SICKLE CELL ANAEMIA WITH CRISIS
     Dosage: 1500 MG, QD
     Route: 048
     Dates: start: 20090601
  2. EXJADE [Suspect]
     Indication: IRON OVERLOAD

REACTIONS (1)
  - SICKLE CELL ANAEMIA WITH CRISIS [None]
